FAERS Safety Report 14225341 (Version 16)
Quarter: 2018Q3

REPORT INFORMATION
  Report Type: Spontaneous
  Country: US (occurrence: US)
  Receive Date: 20171127
  Receipt Date: 20180731
  Transmission Date: 20181010
  Serious: No
  Sender: FDA-Public Use
  Company Number: US-PFIZER INC-2017503250

PATIENT
  Age: 53 Year
  Sex: Female
  Weight: 49.89 kg

DRUGS (15)
  1. PREMARIN [Suspect]
     Active Substance: ESTROGENS, CONJUGATED
     Indication: ARTIFICIAL MENOPAUSE
     Dosage: UNK
  2. SYNTHROID [Concomitant]
     Active Substance: LEVOTHYROXINE SODIUM
     Dosage: 88 UG, 1X/DAY
     Route: 048
     Dates: start: 2016
  3. PREMARIN [Suspect]
     Active Substance: ESTROGENS, CONJUGATED
     Dosage: 1.25 MG, 1X/DAY
     Route: 048
  4. PREMARIN [Suspect]
     Active Substance: ESTROGENS, CONJUGATED
     Indication: ARTIFICIAL MENOPAUSE
     Dosage: 0.625 MG, (THREE TIMES A WEEK OR AS NEEDED)
     Route: 067
     Dates: start: 2008
  5. SYNTHROID [Concomitant]
     Active Substance: LEVOTHYROXINE SODIUM
     Dosage: 88 UG, UNK
  6. CLONAZEPAM. [Concomitant]
     Active Substance: CLONAZEPAM
     Indication: MUSCLE SPASMS
     Dosage: 0.5MG AND CAN TAKE UP TO 2MG PILL DAILY
     Route: 048
  7. PREMARIN [Suspect]
     Active Substance: ESTROGENS, CONJUGATED
     Dosage: 1.25 MG, DAILY (0.625 MG, 2 TABLETS A DAY)
     Route: 048
  8. PREMARIN [Suspect]
     Active Substance: ESTROGENS, CONJUGATED
     Indication: VULVOVAGINAL DRYNESS
     Dosage: 0.5 G, 3?5 TIMES WEEKLY DEPENDING ON THE CONDITION OF HER VAGINA
     Route: 067
  9. SYNTHROID [Concomitant]
     Active Substance: LEVOTHYROXINE SODIUM
     Indication: HYPOTHYROIDISM
     Dosage: 100 UG, DAILY
     Route: 048
  10. SYNTHROID [Concomitant]
     Active Substance: LEVOTHYROXINE SODIUM
     Dosage: 88 UG, UNK (ONCE)
  11. CLONAZEPAM. [Concomitant]
     Active Substance: CLONAZEPAM
     Dosage: UNK, 1X/DAY (0.25 TO 0.5 MG TABLET NIGHTLY BY MOUTH)
     Route: 048
  12. PREMARIN [Suspect]
     Active Substance: ESTROGENS, CONJUGATED
     Dosage: 0.625 MG, UNK (VAGINAL APPLICATOR TO THE FIRST LINE WITH THE LOWEST AMOUNT)
     Route: 067
     Dates: start: 201807
  13. SYNTHROID [Concomitant]
     Active Substance: LEVOTHYROXINE SODIUM
     Dosage: UNK
  14. PREMARIN [Suspect]
     Active Substance: ESTROGENS, CONJUGATED
     Dosage: 1.25 MG, DAILY (2 TABLETS ONCE DAILY)
     Route: 048
     Dates: start: 2015
  15. SYNTHROID [Concomitant]
     Active Substance: LEVOTHYROXINE SODIUM
     Dosage: 88 UG, 1X/DAY
     Route: 048

REACTIONS (14)
  - Product use issue [Unknown]
  - Product quality issue [Unknown]
  - Skin disorder [Unknown]
  - Poor quality drug administered [Unknown]
  - Nervous system disorder [Unknown]
  - Muscle spasms [Unknown]
  - Wrong technique in product usage process [Unknown]
  - Drug ineffective [Not Recovered/Not Resolved]
  - Psychotic disorder [Recovered/Resolved]
  - Initial insomnia [Unknown]
  - Migraine [Unknown]
  - Mammogram abnormal [Not Recovered/Not Resolved]
  - Somnolence [Unknown]
  - Soliloquy [Not Recovered/Not Resolved]

NARRATIVE: CASE EVENT DATE: 2005
